FAERS Safety Report 4875330-X (Version None)
Quarter: 2006Q1

REPORT INFORMATION
  Report Type: 
  Country: None (occurrence: None)
  Receive Date: 20060109
  Receipt Date: 20051019
  Transmission Date: 20060701
  Serious: Yes (Hospitalization, Disabling, Other)
  Sender: FDA-Public Use
  Company Number: US-MERCK-0510USA07939

PATIENT
  Age: 77 Year
  Sex: Female
  Weight: 66 kg

DRUGS (30)
  1. VIOXX [Suspect]
     Indication: ARTHRALGIA
     Route: 048
     Dates: start: 20010201, end: 20030301
  2. ALTACE [Concomitant]
     Route: 065
     Dates: start: 20010412
  3. HYZAAR [Concomitant]
     Route: 065
     Dates: start: 20010402, end: 20010402
  4. CARTIA (ASPIRIN) [Concomitant]
     Route: 065
  5. GLYBURIDE [Concomitant]
     Indication: DIABETES MELLITUS
     Route: 065
  6. ASPIRIN [Concomitant]
     Route: 065
     Dates: start: 20010402
  7. ASPIRIN [Concomitant]
     Route: 065
     Dates: start: 20010412
  8. ASPIRIN [Concomitant]
     Route: 065
     Dates: start: 20010426
  9. ALLEGRA [Concomitant]
     Route: 065
  10. AMIODARONE [Concomitant]
     Route: 065
     Dates: start: 20010426, end: 20010426
  11. FLONASE [Concomitant]
     Route: 065
  12. HYDROCHLOROTHIAZIDE [Concomitant]
     Route: 065
  13. CLONIDINE [Concomitant]
     Route: 065
  14. VIOXX [Suspect]
     Route: 048
     Dates: start: 20010201, end: 20030301
  15. FOSAMAX [Concomitant]
     Route: 065
  16. PLAVIX [Concomitant]
     Indication: ANTICOAGULANT THERAPY
     Route: 065
     Dates: start: 20010527
  17. PLAVIX [Concomitant]
     Route: 065
     Dates: start: 20010412
  18. PLAVIX [Concomitant]
     Route: 065
     Dates: start: 20020328
  19. PLAVIX [Concomitant]
     Route: 065
     Dates: start: 20020829
  20. NORVASC [Concomitant]
     Indication: HYPERTENSION
     Route: 065
     Dates: start: 20021108
  21. AMARYL [Concomitant]
     Route: 065
  22. MICARDIS HCT [Concomitant]
     Indication: HYPERTENSION
     Route: 065
     Dates: start: 20010802
  23. MICARDIS HCT [Concomitant]
     Route: 065
     Dates: start: 20010829
  24. EVISTA [Concomitant]
     Route: 065
  25. ULTRACET [Concomitant]
     Route: 065
     Dates: start: 20030201, end: 20030301
  26. CARDIZEM [Concomitant]
     Route: 065
     Dates: start: 20001209, end: 20010314
  27. TARKA [Concomitant]
     Route: 065
     Dates: start: 20010527, end: 20010527
  28. TYLENOL [Concomitant]
     Route: 065
  29. PROPOXYPHENE HYDROCHLORIDE [Concomitant]
     Route: 065
     Dates: start: 20010412
  30. PROPOXYPHENE HYDROCHLORIDE [Concomitant]
     Route: 065
     Dates: start: 20010619

REACTIONS (19)
  - ANXIETY [None]
  - BLOOD GLUCOSE ABNORMAL [None]
  - BLOOD PRESSURE ABNORMAL [None]
  - CARDIAC FAILURE CONGESTIVE [None]
  - CEREBROVASCULAR ACCIDENT [None]
  - CHEST PAIN [None]
  - CORONARY ARTERY DISEASE [None]
  - CORONARY ARTERY OCCLUSION [None]
  - DEHYDRATION [None]
  - DEPRESSION [None]
  - DIABETES MELLITUS [None]
  - GASTROOESOPHAGEAL REFLUX DISEASE [None]
  - HEADACHE [None]
  - HYPERTENSION [None]
  - INSOMNIA [None]
  - LOSS OF CONSCIOUSNESS [None]
  - OEDEMA PERIPHERAL [None]
  - PLEURAL EFFUSION [None]
  - RUPTURED CEREBRAL ANEURYSM [None]
